FAERS Safety Report 8945933 (Version 2)
Quarter: 2012Q4

REPORT INFORMATION
  Report Type: 
  Country: AU (occurrence: AU)
  Receive Date: 20121205
  Receipt Date: 20121217
  Transmission Date: 20130627
  Serious: Yes (Death)
  Sender: FDA-Public Use
  Company Number: AU-B.I. PHARMACEUTICALS,INC./RIDGEFIELD-2012-AU-01938AU

PATIENT
  Sex: Female

DRUGS (4)
  1. PRADAXA [Suspect]
     Indication: CEREBROVASCULAR ACCIDENT PROPHYLAXIS
     Dates: start: 20110926
  2. PRADAXA [Suspect]
     Indication: ATRIAL FIBRILLATION
  3. COVERAM [Concomitant]
     Indication: HYPERTENSION
  4. GTN SPRAY [Concomitant]

REACTIONS (1)
  - Cerebrovascular accident [Fatal]
